FAERS Safety Report 10435044 (Version 1)
Quarter: 2014Q3

REPORT INFORMATION
  Report Type: Spontaneous
  Country: US (occurrence: None)
  Receive Date: 20140815
  Receipt Date: 20140815
  Transmission Date: 20150326
  Serious: No
  Sender: FDA-Public Use
  Company Number: 2014TUS005037

PATIENT
  Sex: Female

DRUGS (23)
  1. METFORMIN [Concomitant]
     Active Substance: METFORMIN HYDROCHLORIDE
  2. MIRALAX/ (MACROGOL) [Concomitant]
  3. ZETIA [Concomitant]
     Active Substance: EZETIMIBE
  4. VAGIFEM (ESTRADIOL) [Concomitant]
  5. CALCIUM CITRATE (CALCIUM CITRATE) [Concomitant]
  6. MULTIVITAMINS, PLAIN (MULTIVITAMINS, PLAIN) [Concomitant]
  7. HYDROCHLOROTHIAZIDE (HYDROCHLOROTHIAZIDE) [Concomitant]
     Active Substance: HYDROCHLOROTHIAZIDE
  8. AZOR/(ALPRAZOLAM) [Concomitant]
  9. VITAMIN D3 [Concomitant]
     Active Substance: CHOLECALCIFEROL
  10. FISH OIL (FISH OIL) [Concomitant]
     Active Substance: FISH OIL
  11. CARDIC Q (UBIDECARENONE) [Concomitant]
  12. CRESTOR [Concomitant]
     Active Substance: ROSUVASTATIN CALCIUM
  13. LIDODERM [Concomitant]
     Active Substance: LIDOCAINE
  14. ASPIRIN (ACETYLSALICYLIC ACID) [Concomitant]
     Active Substance: ASPIRIN
  15. MIRTAZEPINE TEVA (MIRTAZEPINE) [Concomitant]
  16. ALPRAZOLAM (ALPRAZOLAM) [Concomitant]
     Active Substance: ALPRAZOLAM
  17. PREVACID [Concomitant]
     Active Substance: LANSOPRAZOLE
  18. COREG CR (CARVEDILOL) [Concomitant]
  19. PRIMIDONE (PRIMIDONE) [Concomitant]
  20. EXENATIDE (EXENATIDE) [Concomitant]
     Active Substance: EXENATIDE
  21. METAMUCIL/ (PLANTAGO OVATA) [Concomitant]
  22. BRINTELLIX [Suspect]
     Active Substance: VORTIOXETINE HYDROBROMIDE
     Route: 048
     Dates: start: 20140513, end: 20140527
  23. ULTRACET (PARACETAMOL, TRAMADOL HYDROCHLORIDE) [Concomitant]

REACTIONS (4)
  - Drug ineffective [None]
  - Hypotension [None]
  - Agitation [None]
  - Hypertension [None]
